FAERS Safety Report 5256721-4 (Version None)
Quarter: 2007Q1

REPORT INFORMATION
  Report Type: 
  Country: None (occurrence: None)
  Receive Date: 20070306
  Receipt Date: 20070223
  Transmission Date: 20070707
  Serious: Yes (Hospitalization)
  Sender: FDA-Public Use
  Company Number: HQWYE834121DEC06

PATIENT
  Sex: Male

DRUGS (3)
  1. PANTOZOL [Suspect]
     Indication: HELICOBACTER GASTRITIS
     Dosage: ^1/DAY 3 DF^ OF ZACPAC
     Route: 048
     Dates: start: 20061208, end: 20061208
  2. CLARITHROMYCIN [Suspect]
     Indication: HELICOBACTER GASTRITIS
     Dosage: ^1/DAY 3 DF^ OF ZACPAC
     Route: 048
     Dates: start: 20061208, end: 20061208
  3. AMOXICILLIN [Suspect]
     Indication: HELICOBACTER GASTRITIS
     Dosage: ^1/DAY 3 DF^ OF ZACPAC
     Route: 048
     Dates: start: 20061208, end: 20061208

REACTIONS (5)
  - ARRHYTHMIA [None]
  - DIZZINESS [None]
  - DYSPNOEA [None]
  - SENSATION OF PRESSURE [None]
  - SYNCOPE [None]
